FAERS Safety Report 15630030 (Version 4)
Quarter: 2020Q4

REPORT INFORMATION
  Report Type: Spontaneous
  Country: US (occurrence: US)
  Receive Date: 20181118
  Receipt Date: 20201006
  Transmission Date: 20210113
  Serious: Yes (Hospitalization)
  Sender: FDA-Public Use
  Company Number: US-JNJFOC-20181106090

PATIENT
  Age: 73 Year
  Sex: Female

DRUGS (3)
  1. XARELTO [Suspect]
     Active Substance: RIVAROXABAN
     Indication: DEEP VEIN THROMBOSIS
     Route: 048
     Dates: start: 20160923
  2. XARELTO [Suspect]
     Active Substance: RIVAROXABAN
     Dosage: 15 MG TWICE PER DAY X 21?DAYS THEN 20 MG DAILY
     Route: 048
     Dates: start: 20161019, end: 20161104
  3. MELOXICAM. [Suspect]
     Active Substance: MELOXICAM
     Indication: PRODUCT USED FOR UNKNOWN INDICATION
     Route: 065
     Dates: end: 201611

REACTIONS (2)
  - Upper gastrointestinal haemorrhage [Recovering/Resolving]
  - Hypovolaemic shock [Recovering/Resolving]

NARRATIVE: CASE EVENT DATE: 201610
